FAERS Safety Report 24587124 (Version 2)
Quarter: 2024Q4

REPORT INFORMATION
  Report Type: Spontaneous
  Country: US (occurrence: US)
  Receive Date: 20241107
  Receipt Date: 20241226
  Transmission Date: 20250115
  Serious: No
  Sender: APOTEX
  Company Number: US-APOTEX-2024AP015185

PATIENT
  Age: 45 Year
  Sex: Female

DRUGS (5)
  1. GEMFIBROZIL [Suspect]
     Active Substance: GEMFIBROZIL
     Indication: Hypertriglyceridaemia
     Dosage: UNK
     Route: 065
  2. ICOSAPENT ETHYL [Suspect]
     Active Substance: ICOSAPENT ETHYL
     Indication: Hypertriglyceridaemia
     Dosage: 1 GRAM, BID
     Route: 065
  3. FENOFIBRATE [Suspect]
     Active Substance: FENOFIBRATE
     Indication: Hypertriglyceridaemia
     Dosage: 145 MILLIGRAM, QD
     Route: 065
  4. ROSUVASTATIN [Concomitant]
     Active Substance: ROSUVASTATIN
     Indication: Hypertriglyceridaemia
     Dosage: 10 MILLIGRAM, QD
     Route: 065
  5. OMEGA-3-ACID ETHYL ESTERS [Concomitant]
     Active Substance: OMEGA-3-ACID ETHYL ESTERS
     Indication: Hypertriglyceridaemia
     Dosage: 2 GRAM, BID
     Route: 065

REACTIONS (1)
  - Therapy non-responder [Unknown]
